FAERS Safety Report 20643205 (Version 1)
Quarter: 2022Q1

REPORT INFORMATION
  Report Type: Spontaneous
  Country: ZA (occurrence: None)
  Receive Date: 20220325
  Receipt Date: 20220325
  Transmission Date: 20220423
  Serious: Yes (unspecified)
  Sender: FDA-Public Use
  Company Number: None

PATIENT
  Age: 57 Year
  Sex: Female
  Weight: 65 kg

DRUGS (8)
  1. RIVAROXABAN [Suspect]
     Active Substance: RIVAROXABAN
     Indication: Anticoagulant therapy
     Dosage: OTHER QUANTITY : 1 TABLET(S);?FREQUENCY : AT BEDTIME;?
     Route: 048
     Dates: start: 20220320, end: 20220320
  2. TramalHexal [Concomitant]
  3. PREGABALIN [Concomitant]
     Active Substance: PREGABALIN
  4. AMITRIPTYLINE [Concomitant]
     Active Substance: AMITRIPTYLINE
  5. Simplex [Concomitant]
  6. ZINC [Concomitant]
     Active Substance: ZINC
  7. VITAMIN D [Concomitant]
     Active Substance: VITAMIN D NOS
  8. BUDESONIDE\FORMOTEROL [Concomitant]
     Active Substance: BUDESONIDE\FORMOTEROL

REACTIONS (5)
  - Tremor [None]
  - Apraxia [None]
  - Dysgeusia [None]
  - Dry mouth [None]
  - Feeling jittery [None]

NARRATIVE: CASE EVENT DATE: 20220323
